FAERS Safety Report 12786160 (Version 1)
Quarter: 2016Q3

REPORT INFORMATION
  Report Type: Spontaneous
  Country: US (occurrence: US)
  Receive Date: 20160927
  Receipt Date: 20160927
  Transmission Date: 20161109
  Serious: No
  Sender: FDA-Public Use
  Company Number: US-FRI-1000085244

PATIENT
  Age: 79 Year
  Sex: Female

DRUGS (4)
  1. LINZESS [Suspect]
     Active Substance: LINACLOTIDE
     Dosage: 145 ?G, UNK
     Route: 048
     Dates: start: 201606
  2. SULFA [Concomitant]
     Active Substance: UNSPECIFIED INGREDIENT
     Indication: URINARY TRACT INFECTION
     Dosage: UNK
  3. LINZESS [Suspect]
     Active Substance: LINACLOTIDE
     Indication: CONSTIPATION
     Dosage: 145 ?G, QD
     Route: 048
     Dates: start: 201606, end: 201606
  4. PHENAZOPYRIDINE. [Concomitant]
     Active Substance: PHENAZOPYRIDINE
     Indication: URINARY TRACT INFECTION
     Dosage: UNK

REACTIONS (7)
  - Off label use [Not Recovered/Not Resolved]
  - Abdominal pain [Not Recovered/Not Resolved]
  - Flatulence [Not Recovered/Not Resolved]
  - Drug ineffective [Not Recovered/Not Resolved]
  - Anal incontinence [Recovered/Resolved]
  - Vulvovaginal discomfort [Recovered/Resolved]
  - Vulvovaginal burning sensation [Recovered/Resolved]

NARRATIVE: CASE EVENT DATE: 201606
